FAERS Safety Report 18113570 (Version 3)
Quarter: 2020Q4

REPORT INFORMATION
  Report Type: Report from Study
  Country: None (occurrence: CA)
  Receive Date: 20200805
  Receipt Date: 20201012
  Transmission Date: 20210113
  Serious: Yes (Other)
  Sender: FDA-Public Use
  Company Number: CA-ABBVIE-20K-028-3510923-00

PATIENT
  Sex: Female

DRUGS (1)
  1. IMBRUVICA [Suspect]
     Active Substance: IBRUTINIB
     Indication: CHRONIC LYMPHOCYTIC LEUKAEMIA
     Dosage: STRENGTH = 140 MG STOPPED FROM 2/8/2020 TO 8/8/2020 AND WILL RESTART ON 09/8/2020
     Route: 048
     Dates: start: 20191113, end: 20200802

REACTIONS (2)
  - Cataract [Recovered/Resolved]
  - Surgery [Unknown]
